FAERS Safety Report 7008390-0 (Version None)
Quarter: 2010Q3

REPORT INFORMATION
  Report Type: 
  Country: None (occurrence: None)
  Receive Date: 20100922
  Receipt Date: 20100914
  Transmission Date: 20110219
  Serious: Yes (Life-Threatening, Hospitalization)
  Sender: FDA-Public Use
  Company Number: B0665920A

PATIENT
  Age: 58 Year
  Sex: Female

DRUGS (3)
  1. SERETIDE [Suspect]
     Route: 055
     Dates: start: 20100401, end: 20100401
  2. ANTICONVULSANT [Concomitant]
     Indication: EPILEPSY
     Route: 065
  3. AVAMYS [Concomitant]
     Dates: start: 20100822

REACTIONS (2)
  - ANAPHYLACTIC SHOCK [None]
  - CARDIAC ARREST [None]
